FAERS Safety Report 5683892-8 (Version None)
Quarter: 2008Q1

REPORT INFORMATION
  Report Type: 
  Country: None (occurrence: None)
  Receive Date: 20080327
  Receipt Date: 20080327
  Transmission Date: 20080703
  Serious: Yes (Hospitalization)
  Sender: FDA-Public Use
  Company Number: None

PATIENT
  Age: 60 Year
  Sex: Male
  Weight: 95.2554 kg

DRUGS (1)
  1. CLINDOMYCIN [Suspect]
     Indication: INFECTION

REACTIONS (2)
  - DIARRHOEA [None]
  - DRUG INEFFECTIVE [None]
